FAERS Safety Report 8856129 (Version 1)
Quarter: 2012Q4

REPORT INFORMATION
  Report Type: Spontaneous
  Country: US (occurrence: None)
  Receive Date: 20121022
  Receipt Date: 20121022
  Transmission Date: 20130627
  Serious: Yes (Other)
  Sender: FDA-Public Use
  Company Number: None

PATIENT
  Sex: Female
  Weight: 83.92 kg

DRUGS (2)
  1. ESTRADIOL [Suspect]
     Indication: HOT FLASHES
     Dates: start: 201111, end: 201205
  2. ESTRACE [Concomitant]

REACTIONS (1)
  - Product substitution issue [None]
